FAERS Safety Report 14526939 (Version 3)
Quarter: 2025Q3

REPORT INFORMATION
  Report Type: Spontaneous
  Country: EU (occurrence: EU)
  Receive Date: 20180213
  Receipt Date: 20250709
  Transmission Date: 20251020
  Serious: Yes (Hospitalization, Other)
  Sender: SANOFI AVENTIS
  Company Number: EU-EMA-DD-20180130-FAIZANEVPROD-141823

PATIENT
  Age: 75 Year
  Sex: Female

DRUGS (6)
  1. FLUDARABINE PHOSPHATE [Suspect]
     Active Substance: FLUDARABINE PHOSPHATE
     Indication: Chronic lymphocytic leukaemia
     Dates: end: 201305
  2. CYCLOPHOSPHAMIDE [Suspect]
     Active Substance: CYCLOPHOSPHAMIDE
     Indication: Chronic lymphocytic leukaemia
     Dates: end: 201305
  3. IBRUTINIB [Suspect]
     Active Substance: IBRUTINIB
     Indication: Chronic lymphocytic leukaemia
     Dosage: 420 MG,QD
     Dates: start: 201503
  4. IBRUTINIB [Suspect]
     Active Substance: IBRUTINIB
     Indication: Viral load increased
  5. RITUXIMAB [Suspect]
     Active Substance: RITUXIMAB
     Indication: Chronic lymphocytic leukaemia
     Dates: end: 201305
  6. RITUXIMAB [Suspect]
     Active Substance: RITUXIMAB
     Indication: Viral load increased
     Dosage: 500 MG/M2,QM
     Dates: start: 201503

REACTIONS (8)
  - Cavernous sinus thrombosis [Unknown]
  - Blindness [Not Recovered/Not Resolved]
  - Eye movement disorder [Not Recovered/Not Resolved]
  - Eyelid ptosis [Not Recovered/Not Resolved]
  - Mydriasis [Not Recovered/Not Resolved]
  - Aspergillus infection [Unknown]
  - Headache [Unknown]
  - Sinusitis fungal [Unknown]

NARRATIVE: CASE EVENT DATE: 20150301
